FAERS Safety Report 7834016-X (Version None)
Quarter: 2011Q4

REPORT INFORMATION
  Report Type: 
  Country: None (occurrence: None)
  Receive Date: 20111024
  Receipt Date: 20111014
  Transmission Date: 20120403
  Serious: Yes (Hospitalization)
  Sender: FDA-Public Use
  Company Number: ES-ABBOTT-11P-144-0866645-01

PATIENT
  Age: 31 Year
  Sex: Female

DRUGS (3)
  1. AZATHIOPRINE [Concomitant]
     Indication: CROHN'S DISEASE
  2. HUMIRA [Suspect]
     Indication: CROHN'S DISEASE
     Route: 058
     Dates: end: 20090811
  3. SULFASALAZINE [Concomitant]
     Indication: ARTHRALGIA
     Dates: start: 20090113

REACTIONS (1)
  - ANAL FISTULA [None]
